FAERS Safety Report 5735935-0 (Version None)
Quarter: 2008Q2

REPORT INFORMATION
  Report Type: 
  Country: None (occurrence: None)
  Receive Date: 20080509
  Receipt Date: 20080501
  Transmission Date: 20081010
  Serious: Yes (Hospitalization, Other)
  Sender: FDA-Public Use
  Company Number: 2008S1005766

PATIENT
  Age: 14 Year
  Sex: Female
  Weight: 72.5755 kg

DRUGS (5)
  1. AMNESTEEM [Suspect]
     Indication: ACNE
     Dosage: 40 MG;DAILY; ORAL
     Route: 048
     Dates: start: 20080218, end: 20080314
  2. AMNESTEEM [Suspect]
     Indication: ACNE
     Dosage: 30 MG;TWICE A DAY; ORAL
     Route: 048
     Dates: start: 20080314, end: 20080404
  3. PRILOSEC [Concomitant]
  4. IRON [Concomitant]
  5. VIBRATAB/00055701/ [Concomitant]

REACTIONS (2)
  - MOOD ALTERED [None]
  - SUICIDE ATTEMPT [None]
